FAERS Safety Report 5258689-3 (Version None)
Quarter: 2007Q1

REPORT INFORMATION
  Report Type: 
  Country: None (occurrence: None)
  Receive Date: 20070305
  Receipt Date: 20070119
  Transmission Date: 20070707
  Serious: Yes (Hospitalization)
  Sender: FDA-Public Use
  Company Number: 2007SP001281

PATIENT
  Age: 50 Year
  Sex: Female
  Weight: 52.1637 kg

DRUGS (5)
  1. CLARITIN [Suspect]
     Indication: HYPERSENSITIVITY
     Dosage: QD;PO
     Route: 048
  2. AERIUS (DESLORATADINE) (DESLORATADINE) [Suspect]
     Indication: EAR CONGESTION
  3. AERIUS (DESLORATADINE) (DESLORATADINE) [Suspect]
     Indication: HYPERSENSITIVITY
  4. AERIUS (DESLORATADINE) (DESLORATADINE) [Suspect]
     Indication: SINUS CONGESTION
  5. AERIUS (DESLORATADINE) (DESLORATADINE) [Suspect]
     Indication: THROAT IRRITATION

REACTIONS (6)
  - EAR CONGESTION [None]
  - HEART RATE INCREASED [None]
  - MIDDLE INSOMNIA [None]
  - NO THERAPEUTIC RESPONSE [None]
  - SINUS CONGESTION [None]
  - THROAT IRRITATION [None]
